FAERS Safety Report 10133264 (Version 1)
Quarter: 2014Q2

REPORT INFORMATION
  Report Type: Spontaneous
  Country: US (occurrence: US)
  Receive Date: 20140428
  Receipt Date: 20140428
  Transmission Date: 20141212
  Serious: No
  Sender: FDA-Public Use
  Company Number: US-PFIZER INC-2014114324

PATIENT
  Age: 54 Year
  Sex: Female
  Weight: 59.4 kg

DRUGS (1)
  1. SUTENT [Suspect]
     Indication: NEOPLASM MALIGNANT
     Dosage: UNK
     Dates: start: 20131125, end: 20140129

REACTIONS (2)
  - Disease progression [Unknown]
  - Neoplasm malignant [Unknown]
